FAERS Safety Report 8298656-9 (Version None)
Quarter: 2012Q2

REPORT INFORMATION
  Report Type: 
  Country: None (occurrence: None)
  Receive Date: 20120419
  Receipt Date: 20120410
  Transmission Date: 20120825
  Serious: Yes (Hospitalization)
  Sender: FDA-Public Use
  Company Number: JP-JNJFOC-20120315170

PATIENT
  Age: 8 Decade
  Sex: Female

DRUGS (1)
  1. FENTANYL-100 [Suspect]
     Indication: BACK PAIN
     Dosage: FOR ONCE ONLY
     Route: 062

REACTIONS (3)
  - BREAST CANCER [None]
  - ACCIDENTAL EXPOSURE [None]
  - DIZZINESS [None]
